FAERS Safety Report 6688400-0 (Version None)
Quarter: 2010Q2

REPORT INFORMATION
  Report Type: 
  Country: None (occurrence: None)
  Receive Date: 20100420
  Receipt Date: 20100413
  Transmission Date: 20101027
  Serious: Yes (Other)
  Sender: FDA-Public Use
  Company Number: CZ-ROCHE-697106

PATIENT
  Age: 67 Year
  Sex: Male

DRUGS (3)
  1. AVASTIN [Suspect]
     Route: 042
     Dates: start: 20070215, end: 20081124
  2. XELODA [Concomitant]
     Dosage: ADMINISTERED TWELVE TIMES
  3. OXALIPLATIN [Concomitant]
     Dosage: ADMINISTERED TWELVE TIMES

REACTIONS (3)
  - HYPERTENSION [None]
  - PROTEINURIA [None]
  - RETINOPATHY [None]
